FAERS Safety Report 5442644-4 (Version None)
Quarter: 2007Q3

REPORT INFORMATION
  Report Type: 
  Country: None (occurrence: None)
  Receive Date: 20070904
  Receipt Date: 20070820
  Transmission Date: 20080115
  Serious: Yes (Other)
  Sender: FDA-Public Use
  Company Number: FR-SHR-FR-2007-032462

PATIENT
  Sex: Male

DRUGS (1)
  1. BETAFERON [Suspect]
     Route: 058

REACTIONS (1)
  - CRYPTOCOCCOSIS [None]
